FAERS Safety Report 9830915 (Version 1)
Quarter: 2014Q1

REPORT INFORMATION
  Report Type: Spontaneous
  Country: US (occurrence: US)
  Receive Date: 20140120
  Receipt Date: 20140120
  Transmission Date: 20141002
  Serious: Yes (Hospitalization)
  Sender: FDA-Public Use
  Company Number: PHEH2014US001143

PATIENT
  Sex: Male

DRUGS (7)
  1. DIOVAN [Suspect]
     Dosage: 160 MG, ONE DAILY
  2. BUDESONIDE [Concomitant]
     Dosage: 0.5MG/2ML, TWICE DAILY
  3. ALLOPURINOL [Concomitant]
     Dosage: 300 MG, UNK
  4. SIMVASTATIN [Concomitant]
     Indication: BLOOD CHOLESTEROL ABNORMAL
     Dosage: 40 MG, UNK
  5. CARVEDILOL [Concomitant]
     Indication: BLOOD PRESSURE ABNORMAL
     Dosage: 25 MG, UNK
  6. HYDROCODONE [Concomitant]
     Dosage: 1 DF, (10/500MG) (AS REPORTED)
  7. CYCLOBENZAPRINE [Concomitant]
     Indication: MUSCLE SPASMS
     Dosage: 10 MG, UNK

REACTIONS (3)
  - Asthma [Unknown]
  - Bronchitis [Unknown]
  - Cough [Unknown]
